FAERS Safety Report 10489799 (Version 1)
Quarter: 2014Q4

REPORT INFORMATION
  Report Type: Spontaneous
  Country: FR (occurrence: FR)
  Receive Date: 20141002
  Receipt Date: 20141002
  Transmission Date: 20150528
  Serious: Yes (Life-Threatening)
  Sender: FDA-Public Use
  Company Number: FR-PFIZER INC-2014267976

PATIENT
  Age: 82 Year
  Sex: Male

DRUGS (13)
  1. XARELTO [Suspect]
     Active Substance: RIVAROXABAN
     Indication: PULMONARY EMBOLISM
     Dosage: 20 MG, DAILY
     Route: 048
     Dates: start: 201311, end: 20140205
  2. AMLODIPINE [Concomitant]
     Active Substance: AMLODIPINE BESYLATE
  3. DAFALGAN [Concomitant]
     Active Substance: ACETAMINOPHEN
  4. AMILORIDE/HYDROCHLOROTHIAZIDE [Concomitant]
     Dosage: UNK
     Dates: end: 201311
  5. TRIATEC [Suspect]
     Active Substance: RAMIPRIL
     Indication: HYPERTENSION
     Dosage: 5 MG, DAILY
     Route: 048
     Dates: start: 201311, end: 20140205
  6. INEXIUM [Concomitant]
     Active Substance: ESOMEPRAZOLE
  7. FORLAX [Concomitant]
     Active Substance: POLYETHYLENE GLYCOL 4000
     Dosage: UNK
     Dates: start: 201311
  8. SERETIDE [Concomitant]
     Active Substance: FLUTICASONE FUROATE\SALMETEROL XINAFOATE
  9. ECONAZOLE [Concomitant]
     Active Substance: ECONAZOLE
  10. DIFFU K [Concomitant]
     Active Substance: POTASSIUM CHLORIDE
  11. EDUCTYL [Concomitant]
     Active Substance: POTASSIUM BITARTRATE\SODIUM BICARBONATE
  12. TRIMEBUTINE [Concomitant]
     Active Substance: TRIMEBUTINE
     Dosage: UNK
     Dates: start: 201311
  13. MACROGOL [Concomitant]
     Active Substance: POLYETHYLENE GLYCOLS
     Dosage: UNK
     Dates: end: 201311

REACTIONS (2)
  - Palatal oedema [Recovered/Resolved]
  - Dyspnoea [Recovered/Resolved]

NARRATIVE: CASE EVENT DATE: 20131209
